FAERS Safety Report 10150411 (Version 1)
Quarter: 2014Q2

REPORT INFORMATION
  Report Type: Spontaneous
  Country: US (occurrence: US)
  Receive Date: 20140502
  Receipt Date: 20140502
  Transmission Date: 20141212
  Serious: No
  Sender: FDA-Public Use
  Company Number: US-TEVA-479509USA

PATIENT
  Age: 22 Year
  Sex: Female
  Weight: 69.46 kg

DRUGS (2)
  1. PLAN B ONE-STEP [Suspect]
     Dosage: 1.5 MILLIGRAM DAILY;
     Route: 048
     Dates: start: 20140309, end: 20140309
  2. PLAN B ONE-STEP [Suspect]
     Dosage: 1.5 MILLIGRAM DAILY;
     Route: 048
     Dates: start: 20140319, end: 20140319

REACTIONS (3)
  - Menstruation irregular [Recovered/Resolved]
  - Pelvic pain [Not Recovered/Not Resolved]
  - Menstruation delayed [Not Recovered/Not Resolved]
